FAERS Safety Report 12642538 (Version 1)
Quarter: 2016Q3

REPORT INFORMATION
  Report Type: Spontaneous
  Country: US (occurrence: US)
  Receive Date: 20160810
  Receipt Date: 20160810
  Transmission Date: 20161109
  Serious: No
  Sender: FDA-Public Use
  Company Number: US-CELGENEUS-USA-2016082035

PATIENT
  Sex: Female
  Weight: 63.56 kg

DRUGS (3)
  1. OTEZLA [Suspect]
     Active Substance: APREMILAST
     Indication: PSORIASIS
     Route: 048
     Dates: start: 201507
  2. PRILOSEC [Concomitant]
     Active Substance: OMEPRAZOLE MAGNESIUM
     Indication: BARRETT^S OESOPHAGUS
     Route: 065
  3. OTEZLA [Suspect]
     Active Substance: APREMILAST
     Route: 048
     Dates: end: 20160805

REACTIONS (1)
  - Headache [Recovered/Resolved]
